FAERS Safety Report 5949806-8 (Version None)
Quarter: 2008Q4

REPORT INFORMATION
  Report Type: 
  Country: None (occurrence: None)
  Receive Date: 20081022
  Receipt Date: 20071212
  Transmission Date: 20090506
  Serious: No
  Sender: FDA-Public Use
  Company Number: SPV1-2007-05199

PATIENT
  Age: 10 Year
  Sex: Male

DRUGS (3)
  1. VYVANSE [Suspect]
     Dosage: 50 MG, 1X/DAY:QD, ORAL ; 30 MG, 1X/DAY:QD, ORAL ; 30 MG, 1X/DAY:QD, ORAL
     Route: 048
     Dates: start: 20070101, end: 20071208
  2. VYVANSE [Suspect]
     Dosage: 50 MG, 1X/DAY:QD, ORAL ; 30 MG, 1X/DAY:QD, ORAL ; 30 MG, 1X/DAY:QD, ORAL
     Route: 048
     Dates: start: 20071209, end: 20071212
  3. VYVANSE [Suspect]
     Dosage: 50 MG, 1X/DAY:QD, ORAL ; 30 MG, 1X/DAY:QD, ORAL ; 30 MG, 1X/DAY:QD, ORAL
     Route: 048
     Dates: start: 20071215

REACTIONS (4)
  - CRYING [None]
  - DRUG PRESCRIBING ERROR [None]
  - MOOD ALTERED [None]
  - MORBID THOUGHTS [None]
